FAERS Safety Report 17229839 (Version 2)
Quarter: 2020Q4

REPORT INFORMATION
  Report Type: Spontaneous
  Country: US (occurrence: US)
  Receive Date: 20191227
  Receipt Date: 20201009
  Transmission Date: 20210113
  Serious: Yes (Other)
  Sender: FDA-Public Use
  Company Number: 1626962-2019-00001

PATIENT
  Sex: Male

DRUGS (1)
  1. T-RELIEF TABLETS [Suspect]
     Active Substance: HOMEOPATHICS
     Route: 048

REACTIONS (1)
  - Eye haemorrhage [Recovered/Resolved]
